FAERS Safety Report 20566612 (Version 1)
Quarter: 2022Q1

REPORT INFORMATION
  Report Type: Spontaneous
  Country: US (occurrence: None)
  Receive Date: 20220307
  Receipt Date: 20220307
  Transmission Date: 20220423
  Serious: Yes (Hospitalization)
  Sender: FDA-Public Use
  Company Number: None

PATIENT
  Sex: Male
  Weight: 100.9 kg

DRUGS (16)
  1. TEMOZOLOMIDE [Suspect]
     Active Substance: TEMOZOLOMIDE
     Indication: Brain neoplasm malignant
     Dosage: OTHER FREQUENCY : QD 5 OF 28 DAYS;?
     Route: 048
  2. TEMOZOLOMIDE [Suspect]
     Active Substance: TEMOZOLOMIDE
     Indication: Brain neoplasm malignant
     Dosage: OTHER FREQUENCY : QD 5 OF 28 DAYS;?
     Route: 048
  3. GLIPIZIDE [Concomitant]
     Active Substance: GLIPIZIDE
  4. LEVETIRACETAM [Concomitant]
     Active Substance: LEVETIRACETAM
  5. VITAMINS [Concomitant]
     Active Substance: VITAMINS
  6. ONDANSETRON [Concomitant]
     Active Substance: ONDANSETRON
  7. BACTRIM [Concomitant]
     Active Substance: SULFAMETHOXAZOLE\TRIMETHOPRIM
  8. VITAMIN D3 [Concomitant]
     Active Substance: CHOLECALCIFEROL
  9. AVASTIN [Concomitant]
     Active Substance: BEVACIZUMAB
  10. OLMESARTAN-MEDOXOMIL-HYDROCHLOROTHIAZIDE [Concomitant]
  11. CYMBALTA [Concomitant]
     Active Substance: DULOXETINE HYDROCHLORIDE
  12. MEGASPORE BIOTIC [Concomitant]
  13. DEXAMETHASONE [Concomitant]
     Active Substance: DEXAMETHASONE
  14. DULOXETINE [Concomitant]
     Active Substance: DULOXETINE
  15. LOSARTAN [Concomitant]
     Active Substance: LOSARTAN
  16. HYDROCHLOROTHIAZIDE [Concomitant]
     Active Substance: HYDROCHLOROTHIAZIDE

REACTIONS (1)
  - Brain operation [None]
